FAERS Safety Report 21447460 (Version 7)
Quarter: 2023Q1

REPORT INFORMATION
  Report Type: Report from Study
  Country: IL (occurrence: None)
  Receive Date: 20221012
  Receipt Date: 20230103
  Transmission Date: 20230418
  Serious: Yes (Hospitalization)
  Sender: FDA-Public Use
  Company Number: IL-Eisai Medical Research-EC-2022-125508

PATIENT
  Age: 61 Year
  Sex: Male
  Weight: 76.7 kg

DRUGS (8)
  1. LENVATINIB [Suspect]
     Active Substance: LENVATINIB
     Indication: Metastatic malignant melanoma
     Route: 048
     Dates: start: 20220831, end: 20221003
  2. LENVATINIB [Suspect]
     Active Substance: LENVATINIB
     Route: 048
     Dates: start: 20221020, end: 20221024
  3. QUAVONLIMAB [Suspect]
     Active Substance: QUAVONLIMAB
     Indication: Metastatic malignant melanoma
     Dosage: QUAVONLIMAB (MK-1308) 25 MG (+) PEMBROLIZUMAB (MK-3475) 400 MG (MK-1308A)
     Route: 041
     Dates: start: 20220831, end: 20220831
  4. PEMBROLIZUMAB [Suspect]
     Active Substance: PEMBROLIZUMAB
     Dosage: QUAVONLIMAB (MK-1308) 25 MG (+) PEMBROLIZUMAB (MK-3475) 400 MG (MK-1308A)
     Route: 041
     Dates: start: 20221020, end: 20221020
  5. LOSEC [Concomitant]
     Active Substance: OMEPRAZOLE
     Dates: start: 20220824
  6. LEVETIRACETAM [Concomitant]
     Active Substance: LEVETIRACETAM
     Dates: start: 20220725, end: 20221213
  7. PREDNISONE [Concomitant]
     Active Substance: PREDNISONE
     Dates: start: 20220824, end: 20221003
  8. BROTIZOLAM [Concomitant]
     Active Substance: BROTIZOLAM
     Dates: start: 20220824

REACTIONS (1)
  - Brain oedema [Not Recovered/Not Resolved]

NARRATIVE: CASE EVENT DATE: 20221004
